FAERS Safety Report 7904146-2 (Version None)
Quarter: 2011Q4

REPORT INFORMATION
  Report Type: 
  Country: None (occurrence: None)
  Receive Date: 20111109
  Receipt Date: 20111107
  Transmission Date: 20120403
  Serious: Yes (Other)
  Sender: FDA-Public Use
  Company Number: US-PFIZER INC-2011085835

PATIENT
  Sex: Female
  Weight: 77.551 kg

DRUGS (17)
  1. CHANTIX [Suspect]
     Indication: SMOKING CESSATION THERAPY
     Dosage: 0.5 MG, 1X/DAY
     Route: 048
     Dates: start: 20110410, end: 20110101
  2. LUVOX [Concomitant]
     Indication: ANXIETY
  3. LEVOX [Concomitant]
     Indication: POST-TRAUMATIC STRESS DISORDER
     Dosage: UNK
  4. RISPERDAL [Suspect]
     Indication: POST-TRAUMATIC STRESS DISORDER
  5. LUVOX [Concomitant]
     Indication: DEPRESSION
     Dosage: 50 MG, 1X/DAY
  6. LEVOX [Concomitant]
     Indication: DEPRESSION
  7. LEVOX [Concomitant]
     Indication: ANXIETY
  8. RISPERDAL [Suspect]
     Indication: ANXIETY
  9. LEVOX [Concomitant]
     Indication: OBSESSIVE-COMPULSIVE DISORDER
  10. RISPERDAL [Suspect]
     Indication: PARANOIA
  11. LUVOX [Concomitant]
     Indication: PARANOIA
  12. LUVOX [Concomitant]
     Indication: POST-TRAUMATIC STRESS DISORDER
  13. CHANTIX [Suspect]
     Dosage: UNK
     Route: 048
     Dates: start: 20110101, end: 20110521
  14. RISPERDAL [Suspect]
     Indication: DEPRESSION
     Dosage: 2 MG, 1X/DAY
     Route: 048
  15. CIPROFLOXACIN [Concomitant]
     Indication: URINARY TRACT INFECTION
     Dosage: UNK
     Dates: start: 20110401
  16. RISPERDAL [Suspect]
     Indication: OBSESSIVE-COMPULSIVE DISORDER
  17. LUVOX [Concomitant]
     Indication: OBSESSIVE-COMPULSIVE DISORDER

REACTIONS (4)
  - ANXIETY [None]
  - PARANOIA [None]
  - DEPRESSION [None]
  - OBSESSIVE-COMPULSIVE DISORDER [None]
